FAERS Safety Report 9855854 (Version 2)
Quarter: 2014Q1

REPORT INFORMATION
  Report Type: Spontaneous
  Country: US (occurrence: US)
  Receive Date: 20140130
  Receipt Date: 20140326
  Transmission Date: 20141002
  Serious: No
  Sender: FDA-Public Use
  Company Number: US-PFIZER INC-2014024618

PATIENT
  Age: 64 Year
  Sex: Female
  Weight: 72.56 kg

DRUGS (2)
  1. ADVIL [Suspect]
     Indication: ARTHRALGIA
     Dosage: UNK, AS NEEDED (TWO TO THREE TIMES A DAY)
     Route: 048
     Dates: start: 2009, end: 201401
  2. TRAMADOL [Concomitant]
     Dosage: UNK

REACTIONS (4)
  - Drug ineffective [Not Recovered/Not Resolved]
  - Poor quality drug administered [Unknown]
  - Product taste abnormal [Unknown]
  - Product physical issue [Unknown]
